FAERS Safety Report 7504575-5 (Version None)
Quarter: 2011Q2

REPORT INFORMATION
  Report Type: 
  Country: None (occurrence: None)
  Receive Date: 20110525
  Receipt Date: 20100914
  Transmission Date: 20111010
  Serious: No
  Sender: FDA-Public Use
  Company Number: US-KINGPHARMUSA00001-K201001148

PATIENT
  Age: 39 Year
  Sex: Female
  Weight: 48.98 kg

DRUGS (4)
  1. ATIVAN [Concomitant]
     Indication: ANXIETY
     Dosage: .5 MG, BID
  2. PROPRANOLOL [Concomitant]
     Indication: TACHYCARDIA
     Dosage: UNK
  3. TAPAZOLE [Suspect]
     Indication: HYPERTHYROIDISM
     Dosage: 10 MG, BID
     Route: 048
     Dates: start: 20090101, end: 20090901
  4. TAPAZOLE [Suspect]
     Dosage: 10 MG, QD
     Route: 048
     Dates: start: 20100201, end: 20100908

REACTIONS (5)
  - ABDOMINAL PAIN UPPER [None]
  - MUSCULOSKELETAL CHEST PAIN [None]
  - HYPOTHYROIDISM [None]
  - BLOOD THYROID STIMULATING HORMONE INCREASED [None]
  - BACK PAIN [None]
